FAERS Safety Report 12172085 (Version 8)
Quarter: 2018Q3

REPORT INFORMATION
  Report Type: Report from Study
  Country: US (occurrence: US)
  Receive Date: 20160311
  Receipt Date: 20180824
  Transmission Date: 20181010
  Serious: Yes (Hospitalization)
  Sender: FDA-Public Use
  Company Number: PHHY2016US008196

PATIENT
  Age: 37 Year
  Sex: Male
  Weight: 99.79 kg

DRUGS (3)
  1. GILENYA [Suspect]
     Active Substance: FINGOLIMOD HYDROCHLORIDE
     Indication: MULTIPLE SCLEROSIS
     Dosage: QD
     Route: 048
  2. SOLU?MEDROL [Concomitant]
     Active Substance: METHYLPREDNISOLONE SODIUM SUCCINATE
     Dosage: UNK
     Route: 065
     Dates: start: 20160223, end: 20160310
  3. SOLU?MEDROL [Concomitant]
     Active Substance: METHYLPREDNISOLONE SODIUM SUCCINATE
     Indication: MULTIPLE SCLEROSIS RELAPSE
     Dosage: 1 G, QD
     Route: 042
     Dates: start: 20160116, end: 20160119

REACTIONS (29)
  - Feeling hot [Recovered/Resolved]
  - Dystonia [Recovered/Resolved]
  - Decreased appetite [Unknown]
  - Musculoskeletal pain [Unknown]
  - Pain [Recovering/Resolving]
  - Pain [Recovered/Resolved]
  - Constipation [Unknown]
  - Asthenia [Unknown]
  - Pain in extremity [Unknown]
  - Muscle spasms [Recovered/Resolved]
  - Aspartate aminotransferase increased [Unknown]
  - Nausea [Unknown]
  - Feeling hot [Recovering/Resolving]
  - Anxiety [Recovered/Resolved]
  - Neck pain [Unknown]
  - Spinal pain [Unknown]
  - Central nervous system lesion [Unknown]
  - White blood cell count decreased [Unknown]
  - Fatigue [Unknown]
  - Dizziness [Recovered/Resolved]
  - Muscle spasms [Recovering/Resolving]
  - Dystonia [Recovering/Resolving]
  - Alanine aminotransferase increased [Unknown]
  - Palpitations [Unknown]
  - Pain in extremity [Recovered/Resolved]
  - Lymphocyte count decreased [Unknown]
  - Acne [Unknown]
  - Blood pressure increased [Unknown]
  - Vitiligo [Unknown]

NARRATIVE: CASE EVENT DATE: 20150107
